FAERS Safety Report 18974148 (Version 5)
Quarter: 2022Q1

REPORT INFORMATION
  Report Type: Report from Study
  Country: US (occurrence: US)
  Receive Date: 20210305
  Receipt Date: 20220129
  Transmission Date: 20220423
  Serious: Yes (Hospitalization, Other)
  Sender: FDA-Public Use
  Company Number: NVSC2021US051757

PATIENT
  Age: 82 Year
  Sex: Female

DRUGS (5)
  1. ENTRESTO [Suspect]
     Active Substance: SACUBITRIL\VALSARTAN
     Indication: Product used for unknown indication
     Dosage: UNK
     Route: 048
  2. ENTRESTO [Suspect]
     Active Substance: SACUBITRIL\VALSARTAN
     Dosage: 50 MG, BID (24/26 MG) (FORMULATION REPORTED AS PATCH)
     Route: 048
     Dates: start: 20210304
  3. ENTRESTO [Suspect]
     Active Substance: SACUBITRIL\VALSARTAN
     Dosage: 100 MG, BID (49/51 MG) (FORMULATIO REPORTED AS PATCH)
     Route: 048
  4. ENTRESTO [Suspect]
     Active Substance: SACUBITRIL\VALSARTAN
     Dosage: 50 MG, BID (24/26 MG) INCREASED TO (49/61 MG)
     Route: 048
  5. ENTRESTO [Suspect]
     Active Substance: SACUBITRIL\VALSARTAN
     Dosage: 100 MG, BID (49/51 MG)
     Route: 048

REACTIONS (9)
  - Viral infection [Unknown]
  - Abdominal pain upper [Unknown]
  - Breast cancer [Unknown]
  - Lymphoedema [Unknown]
  - Blood pressure increased [Unknown]
  - Arthritis [Unknown]
  - Peripheral swelling [Unknown]
  - Facial pain [Unknown]
  - Toothache [Unknown]

NARRATIVE: CASE EVENT DATE: 20210301
